FAERS Safety Report 18038551 (Version 2)
Quarter: 2020Q3

REPORT INFORMATION
  Report Type: Spontaneous
  Country: US (occurrence: US)
  Receive Date: 20200717
  Receipt Date: 20200819
  Transmission Date: 20201103
  Serious: No
  Sender: FDA-Public Use
  Company Number: US-PFIZER INC-2020272780

PATIENT
  Age: 44 Year
  Sex: Female

DRUGS (2)
  1. LATUDA [Concomitant]
     Active Substance: LURASIDONE HYDROCHLORIDE
     Dosage: UNK, (120 MG)
  2. XELJANZ XR [Suspect]
     Active Substance: TOFACITINIB CITRATE
     Indication: RHEUMATOID ARTHRITIS
     Dosage: 11 MG, DAILY
     Route: 048
     Dates: start: 20200516

REACTIONS (3)
  - Nasal congestion [Not Recovered/Not Resolved]
  - Rash [Not Recovered/Not Resolved]
  - Rhinorrhoea [Not Recovered/Not Resolved]

NARRATIVE: CASE EVENT DATE: 2020
